FAERS Safety Report 4700858-2 (Version None)
Quarter: 2005Q2

REPORT INFORMATION
  Report Type: 
  Country: None (occurrence: None)
  Receive Date: 20050114
  Receipt Date: 20050114
  Transmission Date: 20051028
  Serious: Yes (Hospitalization)
  Sender: FDA-Public Use
  Company Number: None

PATIENT
  Sex: Male
  Weight: 55.7924 kg

DRUGS (1)
  1. LANOXIN [Suspect]
     Dosage: 1GM

REACTIONS (1)
  - CARDIAC FAILURE [None]
